FAERS Safety Report 23955537 (Version 3)
Quarter: 2024Q3

REPORT INFORMATION
  Report Type: Spontaneous
  Country: PT (occurrence: None)
  Receive Date: 20240610
  Receipt Date: 20240716
  Transmission Date: 20241017
  Serious: Yes (Other)
  Sender: ASTRAZENECA
  Company Number: 2024A131915

PATIENT
  Age: 61 Year
  Sex: Female

DRUGS (5)
  1. TAGRISSO [Suspect]
     Active Substance: OSIMERTINIB
     Indication: Lung neoplasm malignant
     Dosage: 80MG
     Route: 048
     Dates: start: 20240504, end: 20240522
  2. DEXAMETHASONE [Concomitant]
     Active Substance: DEXAMETHASONE
  3. RIVAROXABAN [Concomitant]
     Active Substance: RIVAROXABAN
  4. ALBUTEROL [Concomitant]
     Active Substance: ALBUTEROL
  5. TENOFOVIR [Concomitant]
     Active Substance: TENOFOVIR

REACTIONS (2)
  - Oedema peripheral [Recovering/Resolving]
  - Vasculitis [Recovering/Resolving]

NARRATIVE: CASE EVENT DATE: 20240522
